FAERS Safety Report 21771360 (Version 2)
Quarter: 2023Q1

REPORT INFORMATION
  Report Type: Spontaneous
  Country: US (occurrence: US)
  Receive Date: 20221223
  Receipt Date: 20230104
  Transmission Date: 20230417
  Serious: Yes (Other)
  Sender: FDA-Public Use
  Company Number: US-SUN PHARMACEUTICAL INDUSTRIES LTD-2022R1-370250

PATIENT
  Age: 17 Month
  Sex: Male
  Weight: 8.6 kg

DRUGS (2)
  1. DEXMEDETOMIDINE [Suspect]
     Active Substance: DEXMEDETOMIDINE
     Indication: Resuscitation
     Dosage: 0.4 UG/KG/H
     Route: 065
  2. FENTANYL [Suspect]
     Active Substance: FENTANYL
     Indication: Resuscitation
     Dosage: 2 UG/KG/H
     Route: 065

REACTIONS (1)
  - Disease recurrence [Unknown]
